FAERS Safety Report 14081856 (Version 2)
Quarter: 2018Q1

REPORT INFORMATION
  Report Type: Spontaneous
  Country: US (occurrence: US)
  Receive Date: 20171012
  Receipt Date: 20180112
  Transmission Date: 20180508
  Serious: Yes (Other)
  Sender: FDA-Public Use
  Company Number: US-MYLANLABS-2017M1046606

PATIENT
  Sex: Female

DRUGS (1)
  1. ETHINYLESTRADIOL/NORELGESTROMIN [Suspect]
     Active Substance: ETHINYL ESTRADIOL\NORELGESTROMIN
     Indication: PRODUCT USED FOR UNKNOWN INDICATION
     Dosage: UNK

REACTIONS (4)
  - Product adhesion issue [Recovered/Resolved]
  - Pregnancy [Unknown]
  - Drug ineffective [Unknown]
  - Wrong technique in product usage process [Recovered/Resolved]
